FAERS Safety Report 17437645 (Version 4)
Quarter: 2020Q3

REPORT INFORMATION
  Report Type: Spontaneous
  Country: US (occurrence: US)
  Receive Date: 20200219
  Receipt Date: 20200813
  Transmission Date: 20201102
  Serious: Yes (Hospitalization, Other)
  Sender: FDA-Public Use
  Company Number: US-CELGENEUS-USA-20200205104

PATIENT
  Age: 75 Year
  Sex: Male

DRUGS (2)
  1. REVLIMID [Suspect]
     Active Substance: LENALIDOMIDE
     Dosage: 15 MILLIGRAM
     Route: 048
     Dates: start: 201809
  2. REVLIMID [Suspect]
     Active Substance: LENALIDOMIDE
     Indication: PLASMA CELL MYELOMA
     Dosage: 25 MILLIGRAM
     Route: 048
     Dates: start: 201803

REACTIONS (7)
  - Thrombosis [Unknown]
  - Plasma cell myeloma recurrent [Unknown]
  - Pain [Unknown]
  - Arthralgia [Unknown]
  - Bone pain [Unknown]
  - Asthenia [Unknown]
  - Bone lesion [Recovered/Resolved]

NARRATIVE: CASE EVENT DATE: 2020
